FAERS Safety Report 13544613 (Version 1)
Quarter: 2017Q2

REPORT INFORMATION
  Report Type: Spontaneous
  Country: US (occurrence: US)
  Receive Date: 20170512
  Receipt Date: 20170512
  Transmission Date: 20170830
  Serious: No
  Sender: FDA-Public Use
  Company Number: None

PATIENT
  Age: 80 Year
  Sex: Male

DRUGS (1)
  1. XALKORI [Suspect]
     Active Substance: CRIZOTINIB

REACTIONS (4)
  - Diplopia [None]
  - Back pain [None]
  - Oedema peripheral [None]
  - Abdominal discomfort [None]

NARRATIVE: CASE EVENT DATE: 20170508
